FAERS Safety Report 17298585 (Version 1)
Quarter: 2020Q1

REPORT INFORMATION
  Report Type: Spontaneous
  Country: GB (occurrence: GB)
  Receive Date: 20200122
  Receipt Date: 20200122
  Transmission Date: 20200409
  Serious: Yes (Life-Threatening, Hospitalization, Other)
  Sender: FDA-Public Use
  Company Number: GB-TEVA-2020-GB-1169968

PATIENT
  Age: 34 Year
  Sex: Male

DRUGS (8)
  1. HYOSCINE HYDROBROMIDE [Concomitant]
     Active Substance: SCOPOLAMINE HYDROBROMIDE
     Dosage: 300MCG OM 600MCG ON
  2. AMISULPRIDE [Suspect]
     Active Substance: AMISULPRIDE
     Indication: SCHIZOPHRENIA
     Dosage: 400MG OM AND 600MG ON :1000 MILLIGRAM
     Route: 048
  3. DULOXETINE. [Suspect]
     Active Substance: DULOXETINE
     Indication: DEPRESSION
     Dosage: ON 120 MILLIGRAM
     Route: 048
  4. ZAPONEX [Suspect]
     Active Substance: CLOZAPINE
     Indication: SCHIZOPHRENIA
     Dosage: 50MG OM 375MG ON
     Route: 048
  5. ORPHENADRINE [Concomitant]
     Active Substance: ORPHENADRINE
     Dosage: 100MG OM + 300MG ON
  6. BISACODYL. [Concomitant]
     Active Substance: BISACODYL
  7. VENLAFAXINE [Suspect]
     Active Substance: VENLAFAXINE HYDROCHLORIDE
     Indication: DEPRESSION
     Dosage: MR 300 MILLIGRAM
     Route: 048
  8. LITHIUM. [Suspect]
     Active Substance: LITHIUM
     Indication: DEPRESSION
     Dosage: ON 800 MILLIGRAM
     Route: 048

REACTIONS (4)
  - Electrocardiogram QT prolonged [Unknown]
  - Amnesia [Unknown]
  - Seizure [Recovered/Resolved]
  - Convulsive threshold lowered [Unknown]

NARRATIVE: CASE EVENT DATE: 20190802
